FAERS Safety Report 9458483 (Version 1)
Quarter: 2013Q3

REPORT INFORMATION
  Report Type: Spontaneous
  Country: BR (occurrence: BR)
  Receive Date: 20130814
  Receipt Date: 20130814
  Transmission Date: 20140515
  Serious: Yes (Hospitalization)
  Sender: FDA-Public Use
  Company Number: BR-PFIZER INC-2013225270

PATIENT
  Age: 71 Year
  Sex: Male

DRUGS (4)
  1. XALATAN [Suspect]
     Indication: GLAUCOMA
     Dosage: 1 DROP EACH EYE ONCE A DAY
     Route: 047
  2. XALATAN [Suspect]
     Indication: INTRAOCULAR PRESSURE INCREASED
  3. XALACOM [Suspect]
     Indication: GLAUCOMA
     Dosage: 1 DROP EACH EYE, ONCE A DAY
     Route: 047
  4. XALACOM [Suspect]
     Indication: INTRAOCULAR PRESSURE INCREASED

REACTIONS (2)
  - Glaucoma [Unknown]
  - Breath sounds abnormal [Unknown]
